FAERS Safety Report 5011293-4 (Version None)
Quarter: 2006Q2

REPORT INFORMATION
  Report Type: 
  Country: None (occurrence: None)
  Receive Date: 20060404
  Receipt Date: 20051230
  Transmission Date: 20061013
  Serious: No
  Sender: FDA-Public Use
  Company Number: US200601000142

PATIENT
  Age: 55 Year
  Sex: Female

DRUGS (3)
  1. CYMBALTA [Suspect]
     Indication: PAIN
     Dosage: SEE IMAGE
     Dates: start: 20050101
  2. CYMBALTA [Suspect]
     Indication: PAIN
     Dosage: SEE IMAGE
     Dates: start: 20051101
  3. FLUOXETINE HCL [Concomitant]

REACTIONS (6)
  - BRONCHITIS [None]
  - CHEST DISCOMFORT [None]
  - DIZZINESS [None]
  - DYSPEPSIA [None]
  - FATIGUE [None]
  - HEADACHE [None]
